FAERS Safety Report 4336450-1 (Version None)
Quarter: 2004Q2

REPORT INFORMATION
  Report Type: 
  Country: None (occurrence: None)
  Receive Date: 20040409
  Receipt Date: 20040409
  Transmission Date: 20050107
  Serious: Yes (Other)
  Sender: FDA-Public Use
  Company Number: None

PATIENT
  Age: 57 Year
  Sex: Female

DRUGS (2)
  1. METFORMIN 850 MG APOTEX/TOEPHARM [Suspect]
     Indication: DIABETES MELLITUS
     Dosage: 1 TAB TWICE DAILY BY MOUTH
     Dates: start: 20031215
  2. GLUCOTROL XL [Concomitant]

REACTIONS (2)
  - BLOOD GLUCOSE INCREASED [None]
  - PHARMACEUTICAL PRODUCT COMPLAINT [None]
